FAERS Safety Report 13837793 (Version 2)
Quarter: 2017Q3

REPORT INFORMATION
  Report Type: Report from Study
  Country: None (occurrence: US)
  Receive Date: 20170806
  Receipt Date: 20170811
  Transmission Date: 20171127
  Serious: Yes (Other)
  Sender: FDA-Public Use
  Company Number: US-ABBVIE-17K-163-2057295-00

PATIENT
  Sex: Female

DRUGS (2)
  1. RANEXA [Concomitant]
     Active Substance: RANOLAZINE
     Indication: PRODUCT USED FOR UNKNOWN INDICATION
  2. HUMIRA [Suspect]
     Active Substance: ADALIMUMAB
     Indication: RHEUMATOID ARTHRITIS
     Route: 058

REACTIONS (6)
  - Arthralgia [Unknown]
  - Blood disorder [Unknown]
  - Cardiac disorder [Unknown]
  - Blood pressure decreased [Unknown]
  - Bone pain [Unknown]
  - Abdominal pain upper [Unknown]
